FAERS Safety Report 10651272 (Version 4)
Quarter: 2015Q2

REPORT INFORMATION
  Report Type: Report from Study
  Country: US (occurrence: US)
  Receive Date: 20141215
  Receipt Date: 20150414
  Transmission Date: 20150821
  Serious: Yes (Hospitalization)
  Sender: FDA-Public Use
  Company Number: US-AUROBINDO-AUR-APL-2013-03228

PATIENT
  Sex: Female
  Weight: 123 kg

DRUGS (24)
  1. OXYBUTYNIN [Concomitant]
     Active Substance: OXYBUTYNIN
     Indication: URINARY INCONTINENCE
     Dosage: 5 MG,ONCE A DAY,
     Route: 048
     Dates: start: 2005
  2. CHELATED IRON [Concomitant]
     Indication: MINERAL SUPPLEMENTATION
     Dosage: 20 MG,ONCE A DAY,
     Route: 048
     Dates: start: 2004
  3. VOLTAREN [Concomitant]
     Active Substance: DICLOFENAC SODIUM
     Indication: ARTHRITIS
     Dosage: UNK UNK,UNK,,1% GEL 3X/DAY
     Route: 061
     Dates: start: 20111008
  4. METFORMIN HYDROCHLORIDE TABLETS USP 500 MG [Suspect]
     Active Substance: METFORMIN HYDROCHLORIDE
     Indication: TYPE 2 DIABETES MELLITUS
     Dosage: 500 MG,ONCE A DAY,,500 MG, QAM
     Route: 048
     Dates: start: 201102, end: 20130321
  5. FISH OIL [Concomitant]
     Active Substance: FISH OIL
     Indication: SUPPLEMENTATION THERAPY
     Dosage: 1200 MG,ONCE A DAY,
     Route: 048
     Dates: start: 201104
  6. CALCIUM [Concomitant]
     Active Substance: CALCIUM
     Indication: MINERAL SUPPLEMENTATION
     Dosage: 1 DF,DAILY,
     Route: 048
     Dates: start: 2004
  7. MACROBID [Suspect]
     Active Substance: NITROFURANTOIN\NITROFURANTOIN MONOHYDRATE
     Indication: URINARY TRACT INFECTION
     Dosage: 100 MG,TWO TIMES A DAY,
     Route: 048
     Dates: start: 20130201, end: 20130208
  8. CALCITROL [Concomitant]
     Active Substance: CALCITRIOL
     Indication: VITAMIN D DEFICIENCY
     Dosage: 1 ?G,ONCE A DAY,
     Route: 048
     Dates: start: 2009
  9. VITAMIN B12 [Concomitant]
     Active Substance: CYANOCOBALAMIN
     Indication: VITAMIN SUPPLEMENTATION
     Dosage: 1 DF,ONCE A DAY,
     Route: 048
     Dates: start: 2004
  10. VENTOLIN HFA [Concomitant]
     Active Substance: ALBUTEROL SULFATE
     Indication: CHRONIC OBSTRUCTIVE PULMONARY DISEASE
     Dosage: UNK UNK,UNK,,108 UG, Q4-6 HOURS AS NEEDED
     Route: 048
     Dates: start: 2009
  11. LEVOTHYROXINE [Concomitant]
     Active Substance: LEVOTHYROXINE
     Indication: HYPOTHYROIDISM
     Dosage: 100 ?G,ONCE A DAY,
     Route: 065
     Dates: start: 20121127
  12. SPIRIVA [Concomitant]
     Active Substance: TIOTROPIUM BROMIDE MONOHYDRATE
     Indication: CHRONIC OBSTRUCTIVE PULMONARY DISEASE
     Dosage: UNK UNK,UNK,,1 PUFF, QD
     Route: 065
     Dates: start: 2005
  13. SINGULAIR [Concomitant]
     Active Substance: MONTELUKAST SODIUM
     Indication: ASTHMA
     Dosage: 10 MG,ONCE A DAY,
     Route: 048
     Dates: start: 1991
  14. FUROSEMIDE. [Concomitant]
     Active Substance: FUROSEMIDE
     Indication: JOINT SWELLING
     Dosage: 20 MG,ONCE A DAY,
     Route: 048
     Dates: start: 2000
  15. MULTIVITAMINS [Concomitant]
     Active Substance: VITAMINS
     Indication: VITAMIN SUPPLEMENTATION
     Dosage: 1 DF,ONCE A DAY,
     Route: 048
     Dates: start: 2004
  16. MACROBID [Suspect]
     Active Substance: NITROFURANTOIN\NITROFURANTOIN MONOHYDRATE
     Dosage: 100 MG,TWO TIMES A DAY,
     Route: 048
     Dates: start: 20130320, end: 20130327
  17. NEXIUM [Concomitant]
     Active Substance: ESOMEPRAZOLE MAGNESIUM
     Indication: PROPHYLAXIS
     Dosage: UNK UNK,ONCE A DAY,
     Route: 048
     Dates: start: 20110621, end: 20130321
  18. FLUTICASONE [Concomitant]
     Active Substance: FLUTICASONE\FLUTICASONE PROPIONATE
     Indication: SEASONAL ALLERGY
     Dosage: 50 ?G,AS NECESSARY,
     Dates: start: 2009
  19. AMITRIPTYLINE [Concomitant]
     Active Substance: AMITRIPTYLINE
     Indication: ANXIETY
     Dosage: 25 MG,ONCE A DAY,
     Route: 048
     Dates: start: 2010
  20. TYLENOL EXTRA STRENGTH [Concomitant]
     Active Substance: ACETAMINOPHEN
     Indication: ARTHRALGIA
     Dosage: 500 MG,AS NECESSARY,
     Route: 048
     Dates: start: 20110809
  21. CRANBERRY. [Concomitant]
     Active Substance: CRANBERRY
     Indication: URINARY TRACT INFECTION
     Dosage: 250 MG,ONCE A DAY,
     Route: 065
     Dates: start: 2004
  22. TOPIRAMATE. [Suspect]
     Active Substance: TOPIRAMATE
     Indication: DIABETIC NEUROPATHY
     Dosage: 25 MG,3 TIMES A DAY,
     Route: 048
     Dates: start: 2000, end: 20130321
  23. CIPRO [Suspect]
     Active Substance: CIPROFLOXACIN HYDROCHLORIDE
     Indication: DYSURIA
     Dosage: 500 MG,TWO TIMES A DAY,
     Route: 048
     Dates: start: 20130313, end: 20130319
  24. ADVAIR HFA [Concomitant]
     Active Substance: FLUTICASONE PROPIONATE\SALMETEROL XINAFOATE
     Indication: ASTHMA
     Dosage: UNK UNK,UNK,,1 PUFF TWICE DAILY
     Route: 065
     Dates: start: 2005

REACTIONS (6)
  - Acute kidney injury [Recovered/Resolved]
  - Dizziness [Unknown]
  - Somnolence [Unknown]
  - Decreased appetite [Unknown]
  - Feeling abnormal [Unknown]
  - Swelling [Unknown]
